FAERS Safety Report 11913244 (Version 1)
Quarter: 2016Q1

REPORT INFORMATION
  Report Type: Spontaneous
  Country: US (occurrence: None)
  Receive Date: 20160112
  Receipt Date: 20160112
  Transmission Date: 20160526
  Serious: Yes (Congenital Anomaly)
  Sender: FDA-Public Use
  Company Number: None

PATIENT
  Age: 29 Year
  Sex: Female
  Weight: 83.92 kg

DRUGS (1)
  1. COMPLERA [Suspect]
     Active Substance: EMTRICITABINE\RILPIVIRINE HYDROCHLORIDE\TENOFOVIR DISOPROXIL FUMARATE
     Indication: HIV INFECTION
     Dosage: 1 TABLET  QD  ORAL?DATES OF USE: INDEFINITE
     Route: 048

REACTIONS (2)
  - Premature separation of placenta [None]
  - Talipes [None]

NARRATIVE: CASE EVENT DATE: 20151120
